FAERS Safety Report 17589265 (Version 1)
Quarter: 2020Q1

REPORT INFORMATION
  Report Type: Spontaneous
  Country: US (occurrence: US)
  Receive Date: 20200327
  Receipt Date: 20200327
  Transmission Date: 20200409
  Serious: No
  Sender: FDA-Public Use
  Company Number: US-ALLERGAN-1914079US

PATIENT
  Age: 72 Year
  Sex: Female
  Weight: 65.76 kg

DRUGS (6)
  1. LAMICTAL [Concomitant]
     Active Substance: LAMOTRIGINE
     Dosage: UNK
  2. PROZAC [Concomitant]
     Active Substance: FLUOXETINE HYDROCHLORIDE
     Dosage: UNK
  3. LATISSE [Suspect]
     Active Substance: BIMATOPROST
     Indication: HAIR GROWTH ABNORMAL
  4. ENTOCORT [Concomitant]
     Active Substance: BUDESONIDE
     Indication: COLITIS ULCERATIVE
  5. LATISSE [Suspect]
     Active Substance: BIMATOPROST
     Indication: GROWTH OF EYELASHES
     Dosage: ACTUAL: 1 DROP ON UPPER EYELID LASHES AND 1 DROP ON EYEBROWS
     Route: 061
     Dates: start: 201901
  6. ABILIFY [Concomitant]
     Active Substance: ARIPIPRAZOLE
     Indication: DEPRESSION
     Dosage: UNK

REACTIONS (3)
  - Drug ineffective for unapproved indication [Unknown]
  - Off label use [Unknown]
  - Drug ineffective [Unknown]

NARRATIVE: CASE EVENT DATE: 201901
